FAERS Safety Report 25503397 (Version 1)
Quarter: 2025Q3

REPORT INFORMATION
  Report Type: Spontaneous
  Country: US (occurrence: None)
  Receive Date: 20250702
  Receipt Date: 20250702
  Transmission Date: 20251021
  Serious: Yes (Other)
  Sender: AYUSHI PHARMA
  Company Number: None

PATIENT
  Sex: Male
  Weight: 80 kg

DRUGS (1)
  1. BCG VACCINE [Suspect]
     Active Substance: BCG VACCINE

REACTIONS (1)
  - Hepatic pain [Unknown]
